FAERS Safety Report 11707307 (Version 2)
Quarter: 2015Q4

REPORT INFORMATION
  Report Type: Report from Study
  Country: US (occurrence: US)
  Receive Date: 20151106
  Receipt Date: 20151117
  Transmission Date: 20160304
  Serious: Yes (Other)
  Sender: FDA-Public Use
  Company Number: US-GILEAD-2015-0172952

PATIENT
  Age: 60 Year
  Sex: Male

DRUGS (5)
  1. IDELALISIB [Suspect]
     Active Substance: IDELALISIB
     Indication: LYMPHOMA
     Dosage: 150 MG, QD
     Route: 048
     Dates: start: 201510
  2. HYDROMORPHONE [Concomitant]
     Active Substance: HYDROMORPHONE
     Indication: PAIN
  3. IDELALISIB [Suspect]
     Active Substance: IDELALISIB
     Indication: NON-HODGKIN^S LYMPHOMA
     Dosage: 150 MG, BID
     Route: 048
     Dates: start: 20150916
  4. HYDROMORPHONE [Concomitant]
     Active Substance: HYDROMORPHONE
     Indication: NEUROPATHY PERIPHERAL
  5. IDELALISIB [Suspect]
     Active Substance: IDELALISIB
     Dosage: 150 MG, BID
     Route: 048
     Dates: start: 20150903

REACTIONS (16)
  - Pain in extremity [Unknown]
  - Sleep talking [Unknown]
  - Obsessive thoughts [Unknown]
  - Neuropathy peripheral [Unknown]
  - Disorientation [Unknown]
  - Pain [Unknown]
  - Muscular weakness [Unknown]
  - Discomfort [Unknown]
  - Weight decreased [Unknown]
  - Feeling jittery [Not Recovered/Not Resolved]
  - Decreased appetite [Unknown]
  - Restless legs syndrome [Unknown]
  - Axillary mass [Unknown]
  - Confusional state [Unknown]
  - Constipation [Unknown]
  - Night sweats [Unknown]

NARRATIVE: CASE EVENT DATE: 201511
